FAERS Safety Report 8262144-6 (Version None)
Quarter: 2012Q2

REPORT INFORMATION
  Report Type: 
  Country: None (occurrence: None)
  Receive Date: 20120405
  Receipt Date: 20120321
  Transmission Date: 20120825
  Serious: Yes (Hospitalization)
  Sender: FDA-Public Use
  Company Number: FI-ROCHE-1051382

PATIENT
  Age: 50 Year
  Sex: Female

DRUGS (4)
  1. OXIKLORIN [Concomitant]
     Indication: RHEUMATOID ARTHRITIS
     Route: 048
  2. TREXAN (FINLAND) [Concomitant]
  3. PREDNISOLONE [Concomitant]
     Indication: RHEUMATOID ARTHRITIS
     Route: 048
  4. ACTEMRA [Suspect]
     Indication: RHEUMATOID ARTHRITIS
     Route: 042
     Dates: start: 20110919, end: 20111017

REACTIONS (6)
  - BACTERIAL SEPSIS [None]
  - ABSCESS LIMB [None]
  - EXTRADURAL ABSCESS [None]
  - OSTEONECROSIS [None]
  - INTERVERTEBRAL DISCITIS [None]
  - RETROPERITONEAL ABSCESS [None]
